FAERS Safety Report 19013646 (Version 1)
Quarter: 2021Q1

REPORT INFORMATION
  Report Type: Report from Study
  Country: None (occurrence: BE)
  Receive Date: 20210315
  Receipt Date: 20210315
  Transmission Date: 20210420
  Serious: Yes (Death, Hospitalization, Other)
  Sender: FDA-Public Use
  Company Number: BE-ABBVIE-21P-013-3814434-00

PATIENT
  Age: 63 Year
  Sex: Female
  Weight: 57.2 kg

DRUGS (15)
  1. VENETOCLAX. [Suspect]
     Active Substance: VENETOCLAX
     Route: 048
     Dates: start: 20190808, end: 20190818
  2. TRANEXAMINIC ACID (EXACYL) [Concomitant]
     Indication: HAEMORRHAGE
     Route: 048
     Dates: start: 20190805
  3. POSACONAZOL (NOXAFIL) [Concomitant]
     Indication: PROPHYLAXIS
     Route: 048
  4. ACYCLOVIR (ACYCLOVIR EG) [Concomitant]
     Indication: HERPES VIRUS INFECTION
  5. AMLOR [Concomitant]
     Active Substance: AMLODIPINE BESYLATE
     Indication: PRODUCT USED FOR UNKNOWN INDICATION
     Route: 048
     Dates: start: 20190828
  6. VENETOCLAX. [Suspect]
     Active Substance: VENETOCLAX
     Indication: ACUTE MYELOID LEUKAEMIA
     Route: 048
     Dates: end: 20190731
  7. VENETOCLAX. [Suspect]
     Active Substance: VENETOCLAX
     Route: 048
     Dates: start: 201907
  8. PANTOPRAZOLE [Concomitant]
     Active Substance: PANTOPRAZOLE
     Indication: GASTRITIS
  9. VENETOCLAX. [Suspect]
     Active Substance: VENETOCLAX
     Route: 048
     Dates: start: 20190819, end: 20191005
  10. FOLIC ACID (FOLAVIT) [Concomitant]
     Indication: MYELOSUPPRESSION
     Route: 048
     Dates: start: 20181202
  11. VENETOCLAX. [Suspect]
     Active Substance: VENETOCLAX
     Route: 048
     Dates: start: 20190801, end: 20190807
  12. MEDROL [Concomitant]
     Active Substance: METHYLPREDNISOLONE
     Indication: PRODUCT USED FOR UNKNOWN INDICATION
     Route: 048
     Dates: start: 20190923
  13. PANTOPRAZOLE [Concomitant]
     Active Substance: PANTOPRAZOLE
  14. NYSTATINE [Concomitant]
     Active Substance: NYSTATIN
     Indication: ORAL CANDIDIASIS
  15. MAGNESIUM (MAGNETOP) [Concomitant]
     Indication: MUSCLE SPASMS

REACTIONS (5)
  - Stupor [Unknown]
  - Somnolence [Unknown]
  - Cerebral haemorrhage [Fatal]
  - Disease progression [Not Recovered/Not Resolved]
  - Off label use [Not Recovered/Not Resolved]

NARRATIVE: CASE EVENT DATE: 20190930
